FAERS Safety Report 6623832-8 (Version None)
Quarter: 2010Q1

REPORT INFORMATION
  Report Type: 
  Country: None (occurrence: None)
  Receive Date: 20100310
  Receipt Date: 20100226
  Transmission Date: 20100710
  Serious: Yes (Hospitalization, Other)
  Sender: FDA-Public Use
  Company Number: PHHY2010JP10164

PATIENT
  Age: 10 Year
  Sex: Female

DRUGS (2)
  1. TEGRETOL [Suspect]
     Indication: ELECTROENCEPHALOGRAM ABNORMAL
     Dosage: UNK
     Route: 048
     Dates: start: 20080601, end: 20090601
  2. TEGRETOL [Suspect]
     Indication: EPILEPSY
     Dosage: 300 MG DAILY
     Route: 048
     Dates: start: 20090601

REACTIONS (3)
  - CONDITION AGGRAVATED [None]
  - KNEE DEFORMITY [None]
  - KNEE OPERATION [None]
